FAERS Safety Report 5053282-X (Version None)
Quarter: 2006Q3

REPORT INFORMATION
  Report Type: 
  Country: None (occurrence: None)
  Receive Date: 20060712
  Receipt Date: 20060627
  Transmission Date: 20061208
  Serious: Yes (Death, Hospitalization)
  Sender: FDA-Public Use
  Company Number: AZAUK200600229

PATIENT
  Age: 52 Year
  Sex: Male
  Weight: 83.1 kg

DRUGS (1)
  1. AZACITIDINE (AZACITIDINE) (INJECTION) [Suspect]
     Indication: ACUTE MYELOID LEUKAEMIA
     Dosage: 75 MG/M2, SUBCUTANEOUS
     Route: 058
     Dates: start: 20060614, end: 20060620

REACTIONS (4)
  - ACUTE MYELOID LEUKAEMIA [None]
  - MALIGNANT NEOPLASM PROGRESSION [None]
  - MYELODYSPLASTIC SYNDROME [None]
  - NEUTROPENIC SEPSIS [None]
